FAERS Safety Report 6264059-1 (Version None)
Quarter: 2009Q3

REPORT INFORMATION
  Report Type: 
  Country: None (occurrence: None)
  Receive Date: 20090710
  Receipt Date: 20090706
  Transmission Date: 20100115
  Serious: Yes (Hospitalization, Other)
  Sender: FDA-Public Use
  Company Number: US-ASTRAZENECA-2008UW27515

PATIENT
  Age: 17292 Day
  Sex: Male
  Weight: 90.7 kg

DRUGS (7)
  1. SEROQUEL [Suspect]
     Indication: ANXIETY
     Dosage: 25 TO 500 MG
     Route: 048
     Dates: start: 20040101, end: 20080814
  2. SEROQUEL [Suspect]
     Indication: DEPRESSION
     Dosage: 25 TO 500 MG
     Route: 048
     Dates: start: 20040101, end: 20080814
  3. ZOLOFT [Concomitant]
     Dates: start: 20020510
  4. LORAZEPAM [Concomitant]
     Dates: start: 20020324
  5. CLONAZEPAM [Concomitant]
     Dates: start: 20040621
  6. DIAZEPAM [Concomitant]
     Dates: start: 20050804
  7. HYDROCODONE BITARTRATE [Concomitant]
     Dates: start: 20000202

REACTIONS (6)
  - ADVERSE DRUG REACTION [None]
  - DIABETES MELLITUS [None]
  - DIABETIC COMA [None]
  - LIVER INJURY [None]
  - PANCREATITIS [None]
  - RENAL DISORDER [None]
